FAERS Safety Report 25825706 (Version 4)
Quarter: 2025Q4

REPORT INFORMATION
  Report Type: Spontaneous
  Country: AU (occurrence: AU)
  Receive Date: 20250919
  Receipt Date: 20251110
  Transmission Date: 20260117
  Serious: Yes (Hospitalization)
  Sender: GLAXOSMITHKLINE
  Company Number: AU-GSKCCFAPAC-Case-02568413_AE-102743

PATIENT
  Sex: Male

DRUGS (1)
  1. VENTOLIN [Suspect]
     Active Substance: ALBUTEROL SULFATE
     Indication: Asthma
     Dosage: UNK

REACTIONS (7)
  - Hospitalisation [Unknown]
  - Pallor [Unknown]
  - Stress [Unknown]
  - Product dose omission issue [Unknown]
  - Extra dose administered [Unknown]
  - Incorrect dose administered [Unknown]
  - Product complaint [Unknown]
